FAERS Safety Report 9168757 (Version 1)
Quarter: 2013Q1

REPORT INFORMATION
  Report Type: Spontaneous
  Country: IN (occurrence: None)
  Receive Date: 20130305
  Receipt Date: 20130305
  Transmission Date: 20140127
  Serious: Yes (Life-Threatening, Hospitalization)
  Sender: FDA-Public Use
  Company Number: 2013SUN00261

PATIENT
  Age: 13 Year
  Sex: Female

DRUGS (2)
  1. VALPROIC ACID [Suspect]
     Indication: CONVULSION
     Route: 048
  2. PHENYTOIN SODIUM [Concomitant]

REACTIONS (4)
  - Hyperlactacidaemia [None]
  - Coma [None]
  - Hyperammonaemia [None]
  - Metabolic acidosis [None]
